FAERS Safety Report 5756299-2 (Version None)
Quarter: 2008Q2

REPORT INFORMATION
  Report Type: 
  Country: None (occurrence: None)
  Receive Date: 20080528
  Receipt Date: 20080528
  Transmission Date: 20081010
  Serious: No
  Sender: FDA-Public Use
  Company Number: None

PATIENT
  Age: 40 Year
  Sex: Male
  Weight: 97 kg

DRUGS (1)
  1. OXCARBAZEPINE [Suspect]
     Dosage: 900 MG DAILY PO
     Route: 048

REACTIONS (1)
  - BLOOD SODIUM DECREASED [None]
